FAERS Safety Report 19019212 (Version 1)
Quarter: 2021Q1

REPORT INFORMATION
  Report Type: Spontaneous
  Country: DE (occurrence: DE)
  Receive Date: 20210316
  Receipt Date: 20210316
  Transmission Date: 20210420
  Serious: Yes (Life-Threatening, Hospitalization, Other)
  Sender: FDA-Public Use
  Company Number: DE-REGENERON PHARMACEUTICALS, INC.-2021-34136

PATIENT

DRUGS (1)
  1. LIBTAYO [Suspect]
     Active Substance: CEMIPLIMAB-RWLC
     Indication: SQUAMOUS CELL CARCINOMA
     Dosage: 350 MG, TOTAL
     Route: 065
     Dates: start: 20200508, end: 20200508

REACTIONS (7)
  - General physical health deterioration [Unknown]
  - Pneumonitis [Unknown]
  - Pyrexia [Unknown]
  - Pneumonia [Unknown]
  - Cardiac failure [Unknown]
  - Pulmonary oedema [Unknown]
  - Acute myocardial infarction [Unknown]

NARRATIVE: CASE EVENT DATE: 20200514
